FAERS Safety Report 18762135 (Version 1)
Quarter: 2021Q1

REPORT INFORMATION
  Report Type: Spontaneous
  Country: US (occurrence: US)
  Receive Date: 20210119
  Receipt Date: 20210119
  Transmission Date: 20210419
  Serious: Yes (Other)
  Sender: FDA-Public Use
  Company Number: None

PATIENT
  Age: 79 Year
  Sex: Female
  Weight: 60.75 kg

DRUGS (11)
  1. ROBITUSSIN DM [Concomitant]
     Active Substance: DEXTROMETHORPHAN HYDROBROMIDE\GUAIFENESIN
  2. VERZENIO [Suspect]
     Active Substance: ABEMACICLIB
     Indication: BREAST CANCER
     Route: 048
     Dates: start: 20200228, end: 20210119
  3. PROCHLORPERAZINE. [Concomitant]
     Active Substance: PROCHLORPERAZINE
  4. FULVESTRANT. [Concomitant]
     Active Substance: FULVESTRANT
  5. PRILOSEC [Concomitant]
     Active Substance: OMEPRAZOLE MAGNESIUM
  6. LETROZOLE. [Concomitant]
     Active Substance: LETROZOLE
  7. DELSYM [Concomitant]
     Active Substance: DEXTROMETHORPHAN
  8. IBUPROFEN. [Concomitant]
     Active Substance: IBUPROFEN
  9. ZOFRAN [Concomitant]
     Active Substance: ONDANSETRON HYDROCHLORIDE
  10. ALEVE [Concomitant]
     Active Substance: NAPROXEN SODIUM
  11. CIPRO [Concomitant]
     Active Substance: CIPROFLOXACIN HYDROCHLORIDE

REACTIONS (1)
  - Hospice care [None]

NARRATIVE: CASE EVENT DATE: 20210119
